FAERS Safety Report 8763865 (Version 16)
Quarter: 2013Q4

REPORT INFORMATION
  Report Type: Spontaneous
  Country: US (occurrence: US)
  Receive Date: 20120831
  Receipt Date: 20131221
  Transmission Date: 20140711
  Serious: Yes (Hospitalization, Other)
  Sender: FDA-Public Use
  Company Number: PHEH2006US015705

PATIENT
  Age: 68 Year
  Sex: Male

DRUGS (58)
  1. AREDIA [Suspect]
     Indication: PLASMA CELL MYELOMA
     Dosage: 90 MG, QMO
     Route: 042
     Dates: start: 199706
  2. AREDIA [Suspect]
     Dosage: 90 MG, QMO
     Dates: start: 200212, end: 200308
  3. ZOMETA [Suspect]
     Indication: PLASMA CELL MYELOMA
     Dosage: 4 MG, QMO
     Route: 042
     Dates: start: 200310, end: 20060411
  4. BETAPACE [Concomitant]
     Indication: ARRHYTHMIA
  5. OXYCODONE [Concomitant]
  6. KLONOPIN [Concomitant]
  7. LEXAPRO [Concomitant]
  8. FUROSEMIDE [Concomitant]
  9. LISINOPRIL [Concomitant]
  10. SPIRONOLACTONE [Concomitant]
  11. LORAZEPAM [Concomitant]
  12. PLAVIX [Concomitant]
  13. PREDNISONE [Concomitant]
     Indication: ARTHRITIS
     Dosage: 5 MG, QD
     Dates: start: 199509
  14. STEROIDS NOS [Concomitant]
     Dosage: UNK UKN, UNK
  15. OXYCONTIN [Concomitant]
  16. SERZONE [Concomitant]
     Indication: DEPRESSION
  17. TENORMIN [Concomitant]
  18. ST. JOHN^S WORT [Concomitant]
  19. POTASSIUM [Concomitant]
  20. LASIX [Concomitant]
  21. MAGNESIUM [Concomitant]
  22. ZINC [Concomitant]
  23. MELPHALAN [Concomitant]
  24. DECADRON                                /NET/ [Concomitant]
  25. NITROGLYCERIN ^DAVID BULL^ [Concomitant]
     Indication: ANGINA PECTORIS
     Dosage: UNK UKN, UNK
     Route: 006
  26. FELDENE [Concomitant]
  27. ASPIRIN ^BAYER^ [Concomitant]
  28. PRILOSEC [Concomitant]
  29. COUMADIN ^BOOTS^ [Concomitant]
  30. ALDACTONE [Concomitant]
  31. FOLIC ACID [Concomitant]
  32. ELAVIL [Concomitant]
  33. CELEBREX [Concomitant]
  34. TRUSOPT [Concomitant]
  35. XALATAN [Concomitant]
  36. VENLAFAXINE [Concomitant]
  37. AMIODARONE [Concomitant]
  38. TEMAZEPAM [Concomitant]
  39. NITROSTAT [Concomitant]
  40. MECLIZINE [Concomitant]
  41. DOBUTAMINE [Concomitant]
  42. BUMEX [Concomitant]
  43. CLONAZEPAM [Concomitant]
     Dosage: 0.5 MG, TID P.R.N
     Route: 048
  44. LIDOCAINE [Concomitant]
     Dosage: UNK UKN, UNK
     Route: 062
  45. ROBAXIN [Concomitant]
     Dosage: 500 MG, Q8H
     Route: 048
  46. MILK OF MAGNESIA [Concomitant]
     Dosage: 30 ML, Q6H PRN
     Route: 048
  47. OMEPRAZOLE [Concomitant]
     Dosage: 20 MG, DAILY
     Route: 048
  48. MIRALAX [Concomitant]
     Dosage: 17 G, BID
     Route: 048
  49. ULTRAM [Concomitant]
     Dosage: 100 MG, Q6H PRN
     Route: 048
  50. RESTORIL [Concomitant]
     Dosage: 15 MG, QHS
  51. SENNA GLYCOSIDES, COMBINATIONS [Concomitant]
  52. NITRO-DUR [Concomitant]
     Dosage: 0.6 MG, PER HOUR ON Q A M OFF Q P M
  53. METOPROLOL [Concomitant]
     Dosage: 50 MG, BID
  54. MULTIVITAMINS [Concomitant]
  55. NEURONTIN [Concomitant]
  56. LYRICA [Concomitant]
  57. AMBIEN [Concomitant]
  58. REVLIMID [Concomitant]
     Dosage: 25 MG, QD

REACTIONS (115)
  - Angina unstable [Unknown]
  - Coronary artery disease [Unknown]
  - Cardiac failure congestive [Unknown]
  - Oedema peripheral [Unknown]
  - Abdominal pain [Unknown]
  - Back pain [Not Recovered/Not Resolved]
  - Arrhythmia [Unknown]
  - Osteonecrosis of jaw [Unknown]
  - Bone disorder [Unknown]
  - Pain in jaw [Unknown]
  - General physical health deterioration [Unknown]
  - Edentulous [Unknown]
  - Anxiety [Unknown]
  - Anhedonia [Unknown]
  - Cardiomegaly [Unknown]
  - Depression [Unknown]
  - Neuralgia [Unknown]
  - Neuropathy peripheral [Unknown]
  - Atrial fibrillation [Unknown]
  - Marrow hyperplasia [Unknown]
  - Blood immunoglobulin G increased [Unknown]
  - Fractured sacrum [Unknown]
  - Mass [Unknown]
  - Haematochezia [Unknown]
  - Anaemia [Recovering/Resolving]
  - Osteopenia [Unknown]
  - Cardiac arrest [Unknown]
  - Venous insufficiency [Unknown]
  - Haemorrhage [Unknown]
  - Decubitus ulcer [Unknown]
  - Peripheral arterial occlusive disease [Unknown]
  - Tendon rupture [Unknown]
  - Tendon injury [Unknown]
  - Arthralgia [Unknown]
  - Aspiration joint [Unknown]
  - Pleural effusion [Unknown]
  - Arteriosclerosis coronary artery [Unknown]
  - Cataract [Unknown]
  - Arthropathy [Unknown]
  - Oral neoplasm [Unknown]
  - Mouth ulceration [Unknown]
  - Osteoarthritis [Unknown]
  - Cardiac asthma [Unknown]
  - Wheezing [Unknown]
  - Ankle fracture [Unknown]
  - Fracture nonunion [Unknown]
  - Aortic aneurysm [Unknown]
  - Prostatitis [Unknown]
  - Ventricular tachycardia [Unknown]
  - Dizziness [Recovered/Resolved]
  - Loss of consciousness [Recovered/Resolved]
  - Spondylolisthesis [Unknown]
  - Intervertebral disc degeneration [Unknown]
  - Embolism [Unknown]
  - Cellulitis [Unknown]
  - Ocular hypertension [Unknown]
  - Glaucoma [Unknown]
  - Tinnitus [Unknown]
  - Kyphosis [Unknown]
  - Renal failure chronic [Unknown]
  - Chronic obstructive pulmonary disease [Unknown]
  - Blood creatinine increased [Unknown]
  - Lordosis [Unknown]
  - Odynophagia [Unknown]
  - Tooth loss [Unknown]
  - Temporomandibular joint syndrome [Unknown]
  - Emphysema [Unknown]
  - Atelectasis [Unknown]
  - Gilbert^s syndrome [Unknown]
  - Rib fracture [Unknown]
  - Lymphoedema [Unknown]
  - Osteosclerosis [Unknown]
  - Exostosis [Unknown]
  - Sinus bradycardia [Unknown]
  - Cardiac disorder [Unknown]
  - Injury [Unknown]
  - Vascular calcification [Unknown]
  - Myocardial ischaemia [Unknown]
  - Rales [Unknown]
  - Peripheral vascular disorder [Unknown]
  - Oedema [Unknown]
  - Oropharyngeal pain [Unknown]
  - Chest discomfort [Unknown]
  - Deafness neurosensory [Unknown]
  - Tympanosclerosis [Unknown]
  - Upper-airway cough syndrome [Unknown]
  - Stomatitis [Unknown]
  - Tongue coated [Unknown]
  - Dental caries [Unknown]
  - Oral discharge [Unknown]
  - Laryngeal erythema [Unknown]
  - Ear discomfort [Unknown]
  - Joint effusion [Unknown]
  - Stomach mass [Unknown]
  - Hypercholesterolaemia [Unknown]
  - Varicose vein [Unknown]
  - Spider vein [Unknown]
  - Infection [Unknown]
  - Loose tooth [Unknown]
  - Fall [Unknown]
  - Erectile dysfunction [Unknown]
  - Goitre [Unknown]
  - Radiculopathy [Unknown]
  - Ischaemic cardiomyopathy [Recovering/Resolving]
  - Micturition urgency [Unknown]
  - Heart disease congenital [Unknown]
  - Carotid artery stenosis [Unknown]
  - Systolic dysfunction [Unknown]
  - Hypotension [Unknown]
  - Arterial occlusive disease [Unknown]
  - Umbilical hernia [Unknown]
  - Respiratory distress [Unknown]
  - Left ventricular dysfunction [Unknown]
  - Anaemia megaloblastic [Unknown]
  - Dyslipidaemia [Unknown]
